FAERS Safety Report 19682486 (Version 2)
Quarter: 2021Q3

REPORT INFORMATION
  Report Type: Report from Study
  Country: KR (occurrence: KR)
  Receive Date: 20210810
  Receipt Date: 20210812
  Transmission Date: 20211014
  Serious: Yes (Hospitalization)
  Sender: FDA-Public Use
  Company Number: KR-EISAI MEDICAL RESEARCH-EC-2021-097387

PATIENT
  Age: 54 Year
  Sex: Female
  Weight: 66.5 kg

DRUGS (10)
  1. ULTRACET [Concomitant]
     Active Substance: ACETAMINOPHEN\TRAMADOL HYDROCHLORIDE
     Indication: PAIN
     Route: 048
     Dates: start: 20210310
  2. SINIL?M [Concomitant]
     Indication: PROPHYLAXIS
     Route: 048
     Dates: start: 20210317
  3. SYLCON [Concomitant]
     Active Substance: CALCIUM POLYCARBOPHIL
     Indication: PROPHYLAXIS
     Route: 048
     Dates: start: 20210317
  4. LENVIMA [Suspect]
     Active Substance: LENVATINIB
     Route: 048
     Dates: start: 20210623, end: 20210708
  5. TWYNSTA [Concomitant]
     Active Substance: AMLODIPINE BESYLATE\TELMISARTAN
     Indication: HYPERTENSION
     Dosage: 40/5MG
     Route: 048
     Dates: start: 20210310
  6. LENVIMA [Suspect]
     Active Substance: LENVATINIB
     Indication: HEPATOCELLULAR CARCINOMA
     Route: 048
     Dates: start: 20210303, end: 20210316
  7. LENVIMA [Suspect]
     Active Substance: LENVATINIB
     Route: 048
     Dates: start: 20210317, end: 20210622
  8. LENVIMA [Suspect]
     Active Substance: LENVATINIB
     Route: 048
     Dates: start: 20210714
  9. ENTEONE [Concomitant]
     Indication: CHRONIC HEPATITIS
     Route: 048
     Dates: start: 20210121
  10. LAMINA?G [Concomitant]
     Indication: HAEMORRHAGIC EROSIVE GASTRITIS
     Route: 048
     Dates: start: 20210623

REACTIONS (1)
  - Cholecystitis acute [Recovered/Resolved]

NARRATIVE: CASE EVENT DATE: 20210708
